FAERS Safety Report 8554389 (Version 2)
Quarter: 2013Q2

REPORT INFORMATION
  Report Type: Spontaneous
  Country: US (occurrence: None)
  Receive Date: 20120327
  Receipt Date: 20120709
  Transmission Date: 20140414
  Serious: Yes (Other)
  Sender: FDA-Public Use
  Company Number: PHHY2011US20797

PATIENT
  Sex: Female

DRUGS (9)
  1. GLEEVEC [Suspect]
     Indication: CHRONIC MYELOID LEUKAEMIA
     Dates: end: 20101005
  2. WARFARIN SODIUM [Concomitant]
  3. ALLOPURINOL [Concomitant]
  4. MULTIVITAMIN ^LAPPE^ (VITAMINS NOS) [Concomitant]
  5. IRON (IRON) [Concomitant]
  6. CALCIUM CARBONATE [Concomitant]
  7. MAGNESIUM (MAGNESIUM) [Concomitant]
  8. VITAMIN B6 [Concomitant]
  9. VITAMIN B12 [Concomitant]

REACTIONS (3)
  - RENAL DISORDER [None]
  - DRUG RESISTANCE [None]
  - GENE MUTATION IDENTIFICATION TEST POSITIVE [None]
